FAERS Safety Report 4567076-2 (Version None)
Quarter: 2005Q1

REPORT INFORMATION
  Report Type: 
  Country: None (occurrence: None)
  Receive Date: 20050201
  Receipt Date: 20050121
  Transmission Date: 20050727
  Serious: Yes (Other)
  Sender: FDA-Public Use
  Company Number: US-ROCHE-393392

PATIENT
  Age: 52 Year
  Sex: Female

DRUGS (2)
  1. XELODA [Suspect]
     Dosage: TWO WEEK TREATMENT.
     Route: 048
     Dates: start: 20050115, end: 20050115
  2. IRINOTECAN [Concomitant]
     Route: 065

REACTIONS (2)
  - RASH [None]
  - STEVENS-JOHNSON SYNDROME [None]
